FAERS Safety Report 22892027 (Version 3)
Quarter: 2024Q1

REPORT INFORMATION
  Report Type: Spontaneous
  Country: NZ (occurrence: None)
  Receive Date: 20230901
  Receipt Date: 20240212
  Transmission Date: 20240409
  Serious: Yes (Other)
  Sender: FDA-Public Use
  Company Number: NZ-ROCHE-3413426

PATIENT
  Sex: Female

DRUGS (1)
  1. MABTHERA [Suspect]
     Active Substance: RITUXIMAB
     Indication: Susac^s syndrome
     Route: 065

REACTIONS (2)
  - Cholecystectomy [Recovering/Resolving]
  - Off label use [Unknown]
